FAERS Safety Report 16638088 (Version 2)
Quarter: 2019Q3

REPORT INFORMATION
  Report Type: Spontaneous
  Country: IT (occurrence: IT)
  Receive Date: 20190726
  Receipt Date: 20190819
  Transmission Date: 20191004
  Serious: Yes (Death, Other)
  Sender: FDA-Public Use
  Company Number: PHHY2019IT170368

PATIENT
  Age: 69 Year
  Sex: Male

DRUGS (5)
  1. OFEV [Suspect]
     Active Substance: NINTEDANIB
     Indication: CHEMOTHERAPY
     Dosage: 300 MG, QD
     Route: 065
  2. OFEV [Suspect]
     Active Substance: NINTEDANIB
     Dosage: 200 MG, QD
     Route: 065
     Dates: start: 20160216, end: 20160707
  3. VARGATEF [Suspect]
     Active Substance: NINTEDANIB
     Dosage: 300 MG, QD
     Route: 065
     Dates: end: 20180505
  4. VARGATEF [Suspect]
     Active Substance: NINTEDANIB
     Indication: CHEMOTHERAPY
     Dosage: 200 MG, QD
     Route: 065
     Dates: start: 20160216, end: 20160707
  5. DOCETAXEL. [Suspect]
     Active Substance: DOCETAXEL
     Indication: CHEMOTHERAPY
     Dosage: 75 MG/MQ
     Route: 065

REACTIONS (4)
  - Haematotoxicity [Recovered/Resolved]
  - Multi-organ disorder [Fatal]
  - Toxic neuropathy [Not Recovered/Not Resolved]
  - Disease progression [Fatal]

NARRATIVE: CASE EVENT DATE: 201603
